FAERS Safety Report 7208391-3 (Version None)
Quarter: 2010Q4

REPORT INFORMATION
  Report Type: 
  Country: None (occurrence: None)
  Receive Date: 20101222
  Receipt Date: 20090924
  Transmission Date: 20110411
  Serious: Yes (Death, Other)
  Sender: FDA-Public Use
  Company Number: HOR-2009-00007

PATIENT
  Age: 35 Year
  Sex: Male

DRUGS (4)
  1. SERTRALINE(UNKNOWN)(SERTRALINE) [Suspect]
     Indication: PRODUCT USED FOR UNKNOWN INDICATION
  2. VENLAFAXINE [Suspect]
     Indication: PRODUCT USED FOR UNKNOWN INDICATION
  3. METHADONE (UNKNOWN) [Suspect]
     Indication: PRODUCT USED FOR UNKNOWN INDICATION
  4. TOPIRAMATE [Concomitant]

REACTIONS (9)
  - ASPIRATION [None]
  - BLOOD PRESSURE DECREASED [None]
  - DRUG INTERACTION [None]
  - DRUG TOXICITY [None]
  - HEART RATE DECREASED [None]
  - INTENTIONAL OVERDOSE [None]
  - LOSS OF CONSCIOUSNESS [None]
  - RESPIRATORY RATE DECREASED [None]
  - SEROTONIN SYNDROME [None]
